FAERS Safety Report 16481639 (Version 1)
Quarter: 2019Q2

REPORT INFORMATION
  Report Type: Spontaneous
  Country: MX (occurrence: MX)
  Receive Date: 20190627
  Receipt Date: 20190627
  Transmission Date: 20190711
  Serious: Yes (Death, Hospitalization, Other)
  Sender: FDA-Public Use
  Company Number: MX-SUN PHARMACEUTICAL INDUSTRIES LTD-2019RR-211643

PATIENT
  Age: 66 Year
  Sex: Female

DRUGS (11)
  1. EXEMESTANE. [Suspect]
     Active Substance: EXEMESTANE
     Indication: METASTASES TO LIVER
     Dosage: UNK
     Route: 065
  2. ANASTROZOLE. [Suspect]
     Active Substance: ANASTROZOLE
     Indication: DISEASE PROGRESSION
     Dosage: UNK
     Route: 065
  3. FLUOROURACIL. [Suspect]
     Active Substance: FLUOROURACIL
     Indication: INVASIVE DUCTAL BREAST CARCINOMA
     Dosage: UNK
     Route: 065
  4. CYCLOPHOSPHAMIDE. [Suspect]
     Active Substance: CYCLOPHOSPHAMIDE
     Indication: INVASIVE DUCTAL BREAST CARCINOMA
     Dosage: UNK
     Route: 065
  5. CAPECITABINE. [Suspect]
     Active Substance: CAPECITABINE
     Indication: METASTASES TO LIVER
     Dosage: UNK
     Route: 065
  6. PACLITAXEL. [Suspect]
     Active Substance: PACLITAXEL
     Indication: DISEASE PROGRESSION
     Dosage: 120 MILLIGRAM, TOTAL DOSE
     Route: 065
  7. ADRIAMYCIN [Suspect]
     Active Substance: DOXORUBICIN HYDROCHLORIDE
     Indication: INVASIVE DUCTAL BREAST CARCINOMA
     Dosage: UNK
     Route: 065
  8. VINORELBINE [Suspect]
     Active Substance: VINORELBINE\VINORELBINE TARTRATE
     Indication: INVASIVE DUCTAL BREAST CARCINOMA
     Dosage: UNK
     Route: 065
  9. GEMCITABINE [Suspect]
     Active Substance: GEMCITABINE\GEMCITABINE HYDROCHLORIDE
     Indication: DISEASE PROGRESSION
     Dosage: 1200 MILLIGRAM, TOTAL DOSE
     Route: 065
  10. DOCETAXEL. [Suspect]
     Active Substance: DOCETAXEL
     Indication: DISEASE PROGRESSION
     Dosage: UNK
     Route: 065
  11. TAMOXIFEN [Suspect]
     Active Substance: TAMOXIFEN
     Indication: INVASIVE DUCTAL BREAST CARCINOMA
     Dosage: UNK
     Route: 065

REACTIONS (8)
  - Posterior reversible encephalopathy syndrome [Unknown]
  - Generalised tonic-clonic seizure [Recovering/Resolving]
  - Headache [Unknown]
  - Disease recurrence [Unknown]
  - Hypertension [Unknown]
  - Disease progression [Fatal]
  - Therapy partial responder [Unknown]
  - Mental status changes [Unknown]
